FAERS Safety Report 8249852-8 (Version None)
Quarter: 2012Q2

REPORT INFORMATION
  Report Type: 
  Country: None (occurrence: None)
  Receive Date: 20120402
  Receipt Date: 20120329
  Transmission Date: 20120825
  Serious: Yes (Death)
  Sender: FDA-Public Use
  Company Number: PHHY2012NL027576

PATIENT
  Sex: Female

DRUGS (3)
  1. ZOLEDRONOC ACID [Suspect]
     Dosage: 5 MG/100ML ONCE PER 364 DAYS
     Route: 042
     Dates: start: 20110127
  2. ZOLEDRONOC ACID [Suspect]
     Indication: OSTEOPOROSIS
     Dosage: 5 MG/100ML ONCE PER 364 DAYS
     Route: 042
     Dates: start: 20091210
  3. ZOLEDRONOC ACID [Suspect]
     Dosage: 5 MG/100ML ONCE PER 364 DAYS
     Route: 042
     Dates: start: 20120214

REACTIONS (1)
  - DEATH [None]
